FAERS Safety Report 10077454 (Version 2)
Quarter: 2014Q2

REPORT INFORMATION
  Report Type: Spontaneous
  Country: US (occurrence: US)
  Receive Date: 20140414
  Receipt Date: 20140414
  Transmission Date: 20141212
  Serious: No
  Sender: FDA-Public Use
  Company Number: US-BANPHARM-20131542

PATIENT
  Age: 74 Year
  Sex: Female
  Weight: 83.91 kg

DRUGS (5)
  1. ALEVE LIQUID GELS 220 MG [Suspect]
     Indication: PAIN
     Dosage: 1 DF, TID,
     Route: 048
     Dates: start: 20130719
  2. SOTOLOL [Concomitant]
  3. CLOPEDIGRIL [Concomitant]
  4. CRESTOR [Concomitant]
  5. THYROID MEDICATION [Concomitant]

REACTIONS (1)
  - Drug effect incomplete [Unknown]
